FAERS Safety Report 19667065 (Version 1)
Quarter: 2021Q3

REPORT INFORMATION
  Report Type: Spontaneous
  Country: CA (occurrence: CA)
  Receive Date: 20210806
  Receipt Date: 20210806
  Transmission Date: 20211014
  Serious: Yes (Disabling, Other)
  Sender: FDA-Public Use
  Company Number: CA-COLGATE PALMOLIVE COMPANY-20210701698

PATIENT
  Age: 44 Year
  Sex: Female

DRUGS (47)
  1. OXYCODONE HYDROCHLORIDE. [Suspect]
     Active Substance: OXYCODONE HYDROCHLORIDE
  2. FOLIC ACID. [Suspect]
     Active Substance: FOLIC ACID
  3. OXYCODONE [Suspect]
     Active Substance: OXYCODONE
  4. CETIRIZINE [Suspect]
     Active Substance: CETIRIZINE HYDROCHLORIDE
     Dosage: UNK
  5. METHOTREXATE. [Suspect]
     Active Substance: METHOTREXATE
     Indication: RHEUMATOID ARTHRITIS
     Dosage: UNK
  6. HYDROXYCHLOROQUINE SULFATE. [Suspect]
     Active Substance: HYDROXYCHLOROQUINE SULFATE
     Dosage: UNK
     Route: 048
  7. CETIRIZINE DIHYDROCHLORIDE [Suspect]
     Active Substance: CETIRIZINE HYDROCHLORIDE
     Indication: RHEUMATOID ARTHRITIS
     Dosage: 10 MG
  8. ACTEMRA [Suspect]
     Active Substance: TOCILIZUMAB
     Dosage: UNK
     Route: 042
  9. OXYCODONE TEREPHTHALATE [Suspect]
     Active Substance: OXYCODONE TEREPHTHALATE
  10. HYDROXYCHLOROQUINE SULFATE. [Suspect]
     Active Substance: HYDROXYCHLOROQUINE SULFATE
     Indication: RHEUMATOID ARTHRITIS
     Dosage: 400 MG, QD
     Route: 048
  11. TYLENOL WITH CODEINE [Concomitant]
     Active Substance: ACETAMINOPHEN\CODEINE PHOSPHATE
  12. ACETAMINOPHEN AND CODEINE [Concomitant]
     Active Substance: ACETAMINOPHEN\CODEINE PHOSPHATE
  13. MARVELON [Concomitant]
     Active Substance: DESOGESTREL\ETHINYL ESTRADIOL
  14. CHLORHEXIDINE UNSPECIFIED [Suspect]
     Active Substance: CHLORHEXIDINE
  15. DICLOFENAC [DICLOFENAC SODIUM] [Suspect]
     Active Substance: DICLOFENAC SODIUM
  16. ARAVA [Suspect]
     Active Substance: LEFLUNOMIDE
     Indication: RHEUMATOID ARTHRITIS
  17. HUMIRA [Suspect]
     Active Substance: ADALIMUMAB
     Indication: RHEUMATOID ARTHRITIS
  18. ORENCIA [Suspect]
     Active Substance: ABATACEPT
     Indication: RHEUMATOID ARTHRITIS
     Route: 058
  19. CHLORAPREP [Suspect]
     Active Substance: CHLORHEXIDINE GLUCONATE\ISOPROPYL ALCOHOL
  20. OXYCODONE HYDROCHLORIDE;PARACETAMOL [Suspect]
     Active Substance: ACETAMINOPHEN\OXYCODONE HYDROCHLORIDE
  21. PSEUDOEPHEDRINE HYDROCHLORIDE. [Suspect]
     Active Substance: PSEUDOEPHEDRINE HYDROCHLORIDE
  22. ACTEMRA [Suspect]
     Active Substance: TOCILIZUMAB
     Indication: RHEUMATOID ARTHRITIS
     Dosage: 753 MG
     Route: 058
  23. PHTHALYLSULFATHIAZOLE [Suspect]
     Active Substance: PHTHALYLSULFATHIAZOLE
     Indication: RHEUMATOID ARTHRITIS
     Dosage: 500 MG
  24. PHTHALYLSULFATHIAZOLE [Suspect]
     Active Substance: PHTHALYLSULFATHIAZOLE
     Dosage: UNK
     Route: 048
  25. ENBREL [Suspect]
     Active Substance: ETANERCEPT
     Indication: RHEUMATOID ARTHRITIS
  26. SULFASALAZINE. [Suspect]
     Active Substance: SULFASALAZINE
     Indication: RHEUMATOID ARTHRITIS
     Dosage: 2000 MG, QD
     Route: 048
  27. PANTOPRAZOLE [Concomitant]
     Active Substance: PANTOPRAZOLE
  28. PREDNISONE. [Suspect]
     Active Substance: PREDNISONE
     Route: 048
  29. SIMPONI [Suspect]
     Active Substance: GOLIMUMAB
     Indication: RHEUMATOID ARTHRITIS
     Route: 058
  30. METHOTREXATE. [Suspect]
     Active Substance: METHOTREXATE
     Dosage: UNK
     Route: 048
  31. RITUXAN [Suspect]
     Active Substance: RITUXIMAB
     Indication: RHEUMATOID ARTHRITIS
     Route: 042
  32. DESOXIMETASONE. [Suspect]
     Active Substance: DESOXIMETASONE
     Indication: RHEUMATOID ARTHRITIS
  33. ALENDRONATE SODIUM. [Suspect]
     Active Substance: ALENDRONATE SODIUM
     Indication: RHEUMATOID ARTHRITIS
  34. SULFAMETHOXAZOLE [Suspect]
     Active Substance: SULFAMETHOXAZOLE
  35. PERIOGARD [Suspect]
     Active Substance: CHLORHEXIDINE GLUCONATE
     Route: 002
  36. XELJANZ [Suspect]
     Active Substance: TOFACITINIB CITRATE
     Dosage: 10 MG, QD
  37. SALAZOPYRIN [Concomitant]
     Active Substance: SULFASALAZINE
  38. IBUPROFEN. [Concomitant]
     Active Substance: IBUPROFEN
  39. PANTOLOC [PANTOPRAZOLE SODIUM SESQUIHYDRATE] [Concomitant]
     Active Substance: PANTOPRAZOLE SODIUM
  40. PHTHALYLSULFATHIAZOLE [Suspect]
     Active Substance: PHTHALYLSULFATHIAZOLE
     Dosage: 200 MG, QD
  41. REMICADE [Suspect]
     Active Substance: INFLIXIMAB
     Indication: RHEUMATOID ARTHRITIS
     Route: 042
  42. CIMZIA [Suspect]
     Active Substance: CERTOLIZUMAB PEGOL
     Indication: RHEUMATOID ARTHRITIS
  43. XELJANZ [Suspect]
     Active Substance: TOFACITINIB CITRATE
     Dosage: UNK
  44. ZOPICLONE [Concomitant]
     Active Substance: ZOPICLONE
  45. DESOGESTREL;ETHINYLESTRADIOL [Concomitant]
     Active Substance: DESOGESTREL\ETHINYL ESTRADIOL
  46. CETIRIZINE [Suspect]
     Active Substance: CETIRIZINE HYDROCHLORIDE
     Dosage: 10 G
  47. ACETAMINOPHEN. [Suspect]
     Active Substance: ACETAMINOPHEN

REACTIONS (46)
  - Therapeutic product effect decreased [Not Recovered/Not Resolved]
  - Pericarditis [Not Recovered/Not Resolved]
  - Glossodynia [Not Recovered/Not Resolved]
  - Swelling [Not Recovered/Not Resolved]
  - Systemic lupus erythematosus [Not Recovered/Not Resolved]
  - Drug intolerance [Not Recovered/Not Resolved]
  - Weight increased [Not Recovered/Not Resolved]
  - Dyspnoea [Not Recovered/Not Resolved]
  - Confusional state [Not Recovered/Not Resolved]
  - Alopecia [Not Recovered/Not Resolved]
  - Peripheral swelling [Not Recovered/Not Resolved]
  - Contusion [Not Recovered/Not Resolved]
  - Ill-defined disorder [Not Recovered/Not Resolved]
  - Arthralgia [Not Recovered/Not Resolved]
  - Helicobacter infection [Not Recovered/Not Resolved]
  - Pruritus [Not Recovered/Not Resolved]
  - Pyrexia [Not Recovered/Not Resolved]
  - Pemphigus [Not Recovered/Not Resolved]
  - Anti-cyclic citrullinated peptide antibody positive [Not Recovered/Not Resolved]
  - Discomfort [Not Recovered/Not Resolved]
  - Hepatic enzyme increased [Not Recovered/Not Resolved]
  - Impaired healing [Not Recovered/Not Resolved]
  - Infusion related reaction [Not Recovered/Not Resolved]
  - Infection [Not Recovered/Not Resolved]
  - Folliculitis [Not Recovered/Not Resolved]
  - Abdominal discomfort [Not Recovered/Not Resolved]
  - Arthropathy [Not Recovered/Not Resolved]
  - Sinusitis [Not Recovered/Not Resolved]
  - Blister [Not Recovered/Not Resolved]
  - Nasopharyngitis [Not Recovered/Not Resolved]
  - Hand deformity [Not Recovered/Not Resolved]
  - Pain [Not Recovered/Not Resolved]
  - Muscle injury [Not Recovered/Not Resolved]
  - Stomatitis [Not Recovered/Not Resolved]
  - Drug ineffective [Not Recovered/Not Resolved]
  - Hypersensitivity [Not Recovered/Not Resolved]
  - Gastrointestinal disorder [Not Recovered/Not Resolved]
  - Duodenal ulcer perforation [Not Recovered/Not Resolved]
  - Rash [Not Recovered/Not Resolved]
  - Irritable bowel syndrome [Not Recovered/Not Resolved]
  - Joint swelling [Not Recovered/Not Resolved]
  - Sleep disorder due to general medical condition, insomnia type [Not Recovered/Not Resolved]
  - Fatigue [Not Recovered/Not Resolved]
  - Contraindicated product administered [Not Recovered/Not Resolved]
  - Synovitis [Not Recovered/Not Resolved]
  - Lower respiratory tract infection [Not Recovered/Not Resolved]
